FAERS Safety Report 8538527-3 (Version None)
Quarter: 2012Q3

REPORT INFORMATION
  Report Type: 
  Country: None (occurrence: None)
  Receive Date: 20120726
  Receipt Date: 20120712
  Transmission Date: 20120928
  Serious: Yes (Other)
  Sender: FDA-Public Use
  Company Number: ZA-JNJFOC-20120707042

PATIENT
  Age: 39 Year
  Sex: Male

DRUGS (7)
  1. DURAGESIC-100 [Suspect]
     Indication: PAIN
     Route: 062
  2. DURAGESIC-100 [Suspect]
     Route: 062
     Dates: start: 20120504
  3. TRAMADOL HCL [Concomitant]
     Indication: PAIN
     Route: 062
  4. CITALOPRAM HYDROBROMIDE [Concomitant]
     Route: 065
  5. NAPROSYN [Concomitant]
     Route: 065
  6. SULFASALAZINE [Concomitant]
     Route: 065
  7. HUMIRA [Concomitant]
     Indication: PAIN
     Route: 065

REACTIONS (9)
  - MALAISE [None]
  - NASAL DISORDER [None]
  - FATIGUE [None]
  - INFLUENZA LIKE ILLNESS [None]
  - BODY TEMPERATURE FLUCTUATION [None]
  - NASAL OBSTRUCTION [None]
  - INAPPROPRIATE SCHEDULE OF DRUG ADMINISTRATION [None]
  - CONSTIPATION [None]
  - CHEST DISCOMFORT [None]
